FAERS Safety Report 6003587-0 (Version None)
Quarter: 2008Q4

REPORT INFORMATION
  Report Type: 
  Country: None (occurrence: None)
  Receive Date: 20081212
  Receipt Date: 20081128
  Transmission Date: 20090506
  Serious: Yes (Hospitalization, Other)
  Sender: FDA-Public Use
  Company Number: A-CH2008-21179

PATIENT
  Age: 79 Year
  Sex: Male
  Weight: 44 kg

DRUGS (6)
  1. TRACLEER [Suspect]
     Indication: SKIN ULCER
     Dosage: 62.5 MG, BID, ORAL
     Route: 048
     Dates: start: 20080606, end: 20080710
  2. OMEPRAZOLE [Concomitant]
  3. AMLODIPINE BESYLATE [Concomitant]
  4. PLAVIX [Concomitant]
  5. ASPIRIN [Concomitant]
  6. PIASCLEDINE (PERSEA AMERICANA OIL, GLYCINE MAX SEED OIL) [Concomitant]

REACTIONS (2)
  - IRON DEFICIENCY ANAEMIA [None]
  - MELAENA [None]
